FAERS Safety Report 13700967 (Version 1)
Quarter: 2017Q2

REPORT INFORMATION
  Report Type: Spontaneous
  Country: US (occurrence: US)
  Receive Date: 20170628
  Receipt Date: 20170628
  Transmission Date: 20170830
  Serious: Yes (Other)
  Sender: FDA-Public Use
  Company Number: None

PATIENT
  Age: 50 Year
  Sex: Female
  Weight: 78.75 kg

DRUGS (10)
  1. LEXISCAN [Suspect]
     Active Substance: REGADENOSON
     Indication: CARDIAC STRESS TEST
     Dates: start: 20170627, end: 20170627
  2. PRONTONIXS [Concomitant]
  3. MIRAPEX [Concomitant]
     Active Substance: PRAMIPEXOLE DIHYDROCHLORIDE
  4. EXCEDRINE [Concomitant]
  5. SYNTHROID [Concomitant]
     Active Substance: LEVOTHYROXINE SODIUM
  6. ROBAXIN [Concomitant]
     Active Substance: METHOCARBAMOL
  7. ASPIRIN. [Concomitant]
     Active Substance: ASPIRIN
  8. TYLENOL [Concomitant]
     Active Substance: ACETAMINOPHEN
  9. WELLBUTRIN [Concomitant]
     Active Substance: BUPROPION HYDROCHLORIDE
  10. ATIVAN [Concomitant]
     Active Substance: LORAZEPAM

REACTIONS (4)
  - Myalgia [None]
  - Musculoskeletal stiffness [None]
  - Movement disorder [None]
  - Tremor [None]

NARRATIVE: CASE EVENT DATE: 20170627
